FAERS Safety Report 22391301 (Version 1)
Quarter: 2023Q2

REPORT INFORMATION
  Report Type: Report from Study
  Country: CA (occurrence: CA)
  Receive Date: 20230601
  Receipt Date: 20230601
  Transmission Date: 20230721
  Serious: Yes (Other)
  Sender: FDA-Public Use
  Company Number: CA-002147023-NVSC2023CA095730

PATIENT
  Age: 64 Year
  Sex: Male

DRUGS (5)
  1. ELTROMBOPAG OLAMINE [Suspect]
     Active Substance: ELTROMBOPAG OLAMINE
     Indication: Immune thrombocytopenia
     Dosage: 50 MG, QD
     Route: 048
     Dates: start: 20230329
  2. ELTROMBOPAG OLAMINE [Suspect]
     Active Substance: ELTROMBOPAG OLAMINE
     Dosage: 1 DOSAGE FORM, QOD (1 PILL 50 MG EVERY 2ND DAY)
     Route: 048
     Dates: start: 20230425
  3. ELTROMBOPAG OLAMINE [Suspect]
     Active Substance: ELTROMBOPAG OLAMINE
     Dosage: UNK (1 PILL EVERY 3RD DAY)
     Route: 065
  4. REMICADE [Concomitant]
     Active Substance: INFLIXIMAB
     Indication: Product used for unknown indication
     Dosage: UNK
     Route: 065
  5. PREDNISONE [Concomitant]
     Active Substance: PREDNISONE
     Indication: Product used for unknown indication
     Dosage: UNK
     Route: 065

REACTIONS (6)
  - Platelet count increased [Recovering/Resolving]
  - Pain in extremity [Recovered/Resolved]
  - Mass [Recovered/Resolved]
  - Pain [Recovered/Resolved]
  - Fatigue [Unknown]
  - Off label use [Unknown]
